FAERS Safety Report 17515119 (Version 2)
Quarter: 2020Q2

REPORT INFORMATION
  Report Type: Report from Study
  Country: None (occurrence: US)
  Receive Date: 20200309
  Receipt Date: 20200421
  Transmission Date: 20200713
  Serious: Yes (Hospitalization, Other)
  Sender: FDA-Public Use
  Company Number: US-ABBVIE-20K-163-3308191-00

PATIENT
  Sex: Female
  Weight: 34.5 kg

DRUGS (6)
  1. DILAUDID [Concomitant]
     Active Substance: HYDROMORPHONE HYDROCHLORIDE
     Indication: PAIN
  2. PEPTAMEN [Concomitant]
     Indication: DYSPEPSIA
  3. INSULIN [Concomitant]
     Active Substance: INSULIN NOS
     Indication: DIABETES MELLITUS
  4. PROMETHAZINE [Concomitant]
     Active Substance: PROMETHAZINE HYDROCHLORIDE
     Indication: VOMITING
  5. CREON [Suspect]
     Active Substance: PANCRELIPASE AMYLASE\PANCRELIPASE LIPASE\PANCRELIPASE PROTEASE
     Indication: PRODUCT USED FOR UNKNOWN INDICATION
     Dosage: 5 CAP WITH MEAL, 3 CAP WITH SNACK, 1 WITH SMALL SNACK, USUALLY 12 CAP/ DAY
     Route: 048
     Dates: start: 2013, end: 2017
  6. CREON [Suspect]
     Active Substance: PANCRELIPASE AMYLASE\PANCRELIPASE LIPASE\PANCRELIPASE PROTEASE
     Dosage: 5 CAP WITH MEAL, 3 CAP WITH SNACK, 1 WITH SMALL SNACK, USUALLY 12 CAP/ DAY
     Route: 048
     Dates: start: 201909, end: 202001

REACTIONS (12)
  - Asthenia [Not Recovered/Not Resolved]
  - Hospitalisation [Recovered/Resolved]
  - Skin disorder [Not Recovered/Not Resolved]
  - Finger amputation [Recovering/Resolving]
  - Weight decreased [Not Recovered/Not Resolved]
  - Fatigue [Not Recovered/Not Resolved]
  - Muscle atrophy [Not Recovered/Not Resolved]
  - Vomiting [Recovered/Resolved]
  - Bone cancer [Recovered/Resolved]
  - Skin disorder [Recovered/Resolved]
  - Malabsorption [Not Recovered/Not Resolved]
  - Off label use [Not Recovered/Not Resolved]

NARRATIVE: CASE EVENT DATE: 2013
